FAERS Safety Report 5626111-0 (Version None)
Quarter: 2008Q1

REPORT INFORMATION
  Report Type: 
  Country: None (occurrence: None)
  Receive Date: 20080213
  Receipt Date: 20080213
  Transmission Date: 20080703
  Serious: Yes (Hospitalization, Other)
  Sender: FDA-Public Use
  Company Number: None

PATIENT
  Age: 23 Year
  Sex: Female
  Weight: 38.5557 kg

DRUGS (1)
  1. BOTOX [Suspect]
     Indication: MUSCLE SPASTICITY
     Dosage: DETERMINED BY MD EVERY 3 MONTHS IM GIVEN EVERY 3-4 MONTHS
     Route: 030
     Dates: start: 20000630, end: 20071219

REACTIONS (7)
  - CHEST DISCOMFORT [None]
  - DYSPHAGIA [None]
  - DYSPNOEA [None]
  - EYELID PTOSIS [None]
  - FATIGUE [None]
  - MUSCULAR WEAKNESS [None]
  - SPEECH DISORDER [None]
